FAERS Safety Report 25742149 (Version 1)
Quarter: 2025Q3

REPORT INFORMATION
  Report Type: Spontaneous
  Country: EU (occurrence: EU)
  Receive Date: 20250829
  Receipt Date: 20250829
  Transmission Date: 20251020
  Serious: Yes (Hospitalization)
  Sender: GUERBET
  Company Number: None

PATIENT
  Sex: Female
  Weight: 73 kg

DRUGS (1)
  1. OPTIRAY 350 [Suspect]
     Active Substance: IOVERSOL
     Indication: Product used for unknown indication
     Dosage: 70 (UNITS NOT PROVIDED)
     Route: 042
     Dates: start: 20250707, end: 20250707

REACTIONS (1)
  - Respiratory distress [Recovered/Resolved]

NARRATIVE: CASE EVENT DATE: 20250707
